FAERS Safety Report 21163376 (Version 1)
Quarter: 2022Q3

REPORT INFORMATION
  Report Type: Spontaneous
  Country: JP (occurrence: JP)
  Receive Date: 20220802
  Receipt Date: 20220802
  Transmission Date: 20221027
  Serious: Yes (Other)
  Sender: FDA-Public Use
  Company Number: JP-BAYER-2022A094159

PATIENT
  Age: 87 Year
  Sex: Male

DRUGS (2)
  1. NUBEQA [Suspect]
     Active Substance: DAROLUTAMIDE
     Indication: Hormone-refractory prostate cancer
     Dosage: DAILY DOSE 600MG
     Route: 048
     Dates: start: 20220608, end: 20220608
  2. NUBEQA [Suspect]
     Active Substance: DAROLUTAMIDE
     Indication: Hormone-refractory prostate cancer
     Dosage: DAILY DOSE 1200MG
     Route: 048
     Dates: start: 20220609, end: 20220706

REACTIONS (7)
  - Hormone-refractory prostate cancer [None]
  - Hydronephrosis [None]
  - Cystitis [None]
  - Decreased appetite [Recovering/Resolving]
  - Weight decreased [None]
  - Malaise [Recovering/Resolving]
  - Off label use [None]

NARRATIVE: CASE EVENT DATE: 20220608
